FAERS Safety Report 10991078 (Version 1)
Quarter: 2015Q2

REPORT INFORMATION
  Report Type: Spontaneous
  Country: LT (occurrence: LT)
  Receive Date: 20150406
  Receipt Date: 20150406
  Transmission Date: 20150821
  Serious: Yes (Life-Threatening, Hospitalization)
  Sender: FDA-Public Use
  Company Number: LT-TEVA-550350ISR

PATIENT
  Age: 60 Year
  Sex: Male
  Weight: 64 kg

DRUGS (1)
  1. TEMOZOLOMIDA TEVA [Suspect]
     Active Substance: TEMOZOLOMIDE
     Indication: GLIOBLASTOMA
     Dosage: 140 MILLIGRAM DAILY;
     Route: 048
     Dates: start: 20150105, end: 20150210

REACTIONS (4)
  - Febrile neutropenia [Recovering/Resolving]
  - Pneumonia [Recovering/Resolving]
  - Pancytopenia [Recovering/Resolving]
  - Thrombocytopenia [Recovering/Resolving]

NARRATIVE: CASE EVENT DATE: 20150210
